FAERS Safety Report 4376015-9 (Version None)
Quarter: 2004Q2

REPORT INFORMATION
  Report Type: 
  Country: None (occurrence: None)
  Receive Date: 20040607
  Receipt Date: 20040524
  Transmission Date: 20050107
  Serious: Yes (Other)
  Sender: FDA-Public Use
  Company Number: 2004215474GB

PATIENT
  Age: 97 Year
  Sex: Female
  Weight: 60.5 kg

DRUGS (9)
  1. VALDECOXIB [Suspect]
     Indication: OSTEOARTHRITIS
     Dosage: 1 DF, QD, ORAL
     Route: 048
     Dates: start: 20040504, end: 20040516
  2. METHYLPREDNISOLONE ACETATE [Concomitant]
  3. FOLIC ACID [Concomitant]
  4. FUROSEMIDE [Concomitant]
  5. ACETAMINOPHEN [Concomitant]
  6. ASPIRIN [Concomitant]
  7. NABUMETONE [Concomitant]
  8. FERROUS SULFATE EXSICCATED (FERROUS SULFATE EXSICCATED) [Concomitant]
  9. CLOPIDOGREL (CLOPIDOGREL) [Concomitant]

REACTIONS (1)
  - HALLUCINATION, VISUAL [None]
